FAERS Safety Report 9915192 (Version 2)
Quarter: 2014Q2

REPORT INFORMATION
  Report Type: Report from Study
  Country: DK (occurrence: DK)
  Receive Date: 20140220
  Receipt Date: 20140425
  Transmission Date: 20141212
  Serious: Yes (Hospitalization)
  Sender: FDA-Public Use
  Company Number: DK-ASTRAZENECA-2014SE10801

PATIENT
  Age: 71 Year
  Sex: Female

DRUGS (4)
  1. STUDY PROCEDURE [Suspect]
     Indication: ACUTE CORONARY SYNDROME
     Route: 065
  2. TICAGRELOR [Suspect]
     Indication: ACUTE CORONARY SYNDROME
     Route: 048
     Dates: start: 20131130, end: 20131130
  3. TICAGRELOR [Suspect]
     Indication: ACUTE CORONARY SYNDROME
     Route: 048
     Dates: start: 20131130
  4. ACETYLSALICYLIC ACID [Suspect]
     Indication: ACUTE CORONARY SYNDROME
     Route: 048
     Dates: start: 20131113

REACTIONS (3)
  - Post procedural haematoma [Recovered/Resolved]
  - Drug ineffective [Unknown]
  - Ischaemic stroke [Recovered/Resolved]
